FAERS Safety Report 7562757-0 (Version None)
Quarter: 2011Q2

REPORT INFORMATION
  Report Type: 
  Country: None (occurrence: None)
  Receive Date: 20110622
  Receipt Date: 20110617
  Transmission Date: 20111010
  Serious: Yes (Other)
  Sender: FDA-Public Use
  Company Number: AU-PFIZER INC-2011134329

PATIENT
  Age: 65 Year
  Sex: Male

DRUGS (5)
  1. LIPITOR [Suspect]
     Indication: HYPERTENSION
  2. LIPITOR [Suspect]
     Indication: HYPERCHOLESTEROLAEMIA
     Dosage: 40 MG, UNK
     Dates: start: 20080618
  3. ACETYLSALICYLIC ACID [Concomitant]
  4. ATACAND [Concomitant]
  5. PLAVIX [Concomitant]

REACTIONS (1)
  - AMNESIA [None]
